FAERS Safety Report 19095026 (Version 1)
Quarter: 2021Q2

REPORT INFORMATION
  Report Type: Spontaneous
  Country: CN (occurrence: CN)
  Receive Date: 20210405
  Receipt Date: 20210405
  Transmission Date: 20210717
  Serious: Yes (Other)
  Sender: FDA-Public Use
  Company Number: CN-BAXTER-2021BAX006254

PATIENT
  Age: 12 Year
  Sex: Male
  Weight: 38.6 kg

DRUGS (11)
  1. 5% GLUCOSE AND 0.9% SODIUM CHLORIDE INJECTION [Suspect]
     Active Substance: DEXTROSE\SODIUM CHLORIDE
     Dosage: CYTOSAR 2.5 G + (4:1) GLUCOSE AND SODIUM CHLORIDE 250ML; CAML CHEMOTHERAPY
     Route: 041
     Dates: start: 20210227, end: 20210301
  2. PEGASPARGASE [Suspect]
     Active Substance: PEGASPARGASE
     Indication: T-CELL LYMPHOMA
     Dosage: CAML CHEMOTHERAPY
     Route: 030
     Dates: start: 20210301, end: 20210301
  3. ENDOXAN [Suspect]
     Active Substance: CYCLOPHOSPHAMIDE
     Indication: ACUTE LYMPHOCYTIC LEUKAEMIA
  4. CYTOSAR [Suspect]
     Active Substance: CYTARABINE
     Indication: ACUTE LYMPHOCYTIC LEUKAEMIA
  5. ENDOXAN [Suspect]
     Active Substance: CYCLOPHOSPHAMIDE
     Indication: T-CELL LYMPHOMA
     Dosage: ENDOXAN 0.95 G + 4:1 GLUCOSE AND SODIUM CHLORIDE 250ML; CAML CHEMOTHERAPY
     Route: 041
     Dates: start: 20210227, end: 20210227
  6. CYTOSAR [Suspect]
     Active Substance: CYTARABINE
     Indication: T-CELL LYMPHOMA
     Dosage: CYTOSAR 2.5 G + (4:1) GLUCOSE AND SODIUM CHLORIDE 250ML; CAML CHEMOTHERAPY
     Route: 041
     Dates: start: 20210227, end: 20210301
  7. MERCAPTOPURINE. [Suspect]
     Active Substance: MERCAPTOPURINE
     Indication: T-CELL LYMPHOMA
     Dosage: DOSAGE FORM: TABLET; CAML CHEMOTHERAPY
     Route: 048
     Dates: start: 20210227, end: 20210305
  8. PEGASPARGASE [Suspect]
     Active Substance: PEGASPARGASE
     Indication: PRODUCT USED FOR UNKNOWN INDICATION
     Dosage: PRIOR TO AE
     Route: 030
     Dates: start: 20210113, end: 20210113
  9. 5% GLUCOSE AND 0.9% SODIUM CHLORIDE INJECTION [Suspect]
     Active Substance: DEXTROSE\SODIUM CHLORIDE
     Indication: MEDICATION DILUTION
     Dosage: ENDOXAN 0.95 G + 4:1 GLUCOSE AND SODIUM CHLORIDE 250ML; CAML CHEMOTHERAPY
     Route: 041
     Dates: start: 20210227, end: 20210227
  10. PEGASPARGASE [Suspect]
     Active Substance: PEGASPARGASE
     Indication: ACUTE LYMPHOCYTIC LEUKAEMIA
  11. MERCAPTOPURINE. [Suspect]
     Active Substance: MERCAPTOPURINE
     Indication: ACUTE LYMPHOCYTIC LEUKAEMIA

REACTIONS (1)
  - Myelosuppression [Recovering/Resolving]

NARRATIVE: CASE EVENT DATE: 20210311
